FAERS Safety Report 8241637-1 (Version None)
Quarter: 2012Q1

REPORT INFORMATION
  Report Type: 
  Country: None (occurrence: None)
  Receive Date: 20120328
  Receipt Date: 20120316
  Transmission Date: 20120608
  Serious: Yes (Hospitalization, Other)
  Sender: FDA-Public Use
  Company Number: FR-PFIZER INC-2012005385

PATIENT
  Age: 35 Year
  Sex: Female

DRUGS (7)
  1. EFFEXOR XR [Suspect]
     Dosage: 75 MG, 2X/DAY
     Route: 048
     Dates: start: 20111210, end: 20111223
  2. VENLAFAXINE HCL [Suspect]
     Dosage: 50 MG, DAILY
     Route: 048
     Dates: start: 20111207, end: 20111209
  3. HYDROXYZINE HCL [Suspect]
     Dosage: 300 MG, UNTIL 300 MG DAILY
     Route: 048
     Dates: start: 20111221
  4. ZYPREXA [Suspect]
     Indication: MAJOR DEPRESSION
     Dosage: 10 MG, 2X/DAY
     Route: 048
     Dates: start: 20111201, end: 20111205
  5. ZYPREXA [Suspect]
     Dosage: 10 MG, DAILY
     Route: 048
     Dates: start: 20111206, end: 20111223
  6. TERCIAN [Suspect]
     Indication: ANXIOLYTIC THERAPY
     Dosage: PROGRESSIVELY REDUCED
     Route: 048
     Dates: start: 20111202, end: 20111213
  7. TERCIAN [Suspect]
     Dosage: 100 MG ORAL DROPS DAILY
     Route: 048
     Dates: start: 20111201, end: 20111201

REACTIONS (2)
  - CYTOLYTIC HEPATITIS [None]
  - PRURITUS [None]
